FAERS Safety Report 8774224 (Version 1)
Quarter: 2012Q4

REPORT INFORMATION
  Report Type: 
  Country: IS (occurrence: IS)
  Receive Date: 20120907
  Receipt Date: 20120907
  Transmission Date: 20130627
  Serious: Yes (Hospitalization)
  Sender: FDA-Public Use
  Company Number: IS-PFIZER INC-2012215295

PATIENT
  Age: 55 Year
  Sex: Male

DRUGS (9)
  1. SIMVASTATIN [Suspect]
     Dosage: 80 mg per day
  2. ATORVASTATIN CALCIUM [Suspect]
     Dosage: UNK
  3. CELECOXIB [Concomitant]
     Dosage: UNK
  4. GLUCOPHAGE [Concomitant]
     Dosage: UNK
  5. CLOPIDOGREL [Concomitant]
     Dosage: UNK
  6. ACETYLSALICYLIC ACID [Concomitant]
     Dosage: UNK
  7. SELOKEN [Concomitant]
     Dosage: UNK
  8. OMEGA - 3 FATTY ACIDS [Concomitant]
     Dosage: UNK
  9. PARACETAMOL WITH CODEINE [Concomitant]
     Dosage: [paracetamol 500 mg with codeine 10 mg, 1-5 tablets daily as needed

REACTIONS (3)
  - Hepatitis acute [Recovered/Resolved]
  - Jaundice [Recovered/Resolved]
  - Chromaturia [Recovered/Resolved]
